FAERS Safety Report 13057108 (Version 1)
Quarter: 2016Q4

REPORT INFORMATION
  Report Type: Spontaneous
  Country: AU (occurrence: AU)
  Receive Date: 20161222
  Receipt Date: 20161222
  Transmission Date: 20170207
  Serious: Yes (Other)
  Sender: FDA-Public Use
  Company Number: AU-ASTRAZENECA-2016SE84597

PATIENT
  Age: 15930 Day
  Sex: Female
  Weight: 44 kg

DRUGS (3)
  1. CALTRATE/ VITAMIN D [Concomitant]
     Indication: BONE DISORDER
     Route: 048
  2. FASLODEX [Suspect]
     Active Substance: FULVESTRANT
     Indication: BREAST CANCER
     Dosage: 2 INJECTIONS OF 250 MG
     Route: 030
     Dates: start: 20160728, end: 20161117
  3. THYROXINE [Concomitant]
     Active Substance: LEVOTHYROXINE
     Indication: HYPOTHYROIDISM
     Dosage: 500 MG

REACTIONS (4)
  - Disease progression [Unknown]
  - Paraesthesia oral [Recovered/Resolved]
  - Dyspnoea [Recovered/Resolved]
  - Device issue [Unknown]

NARRATIVE: CASE EVENT DATE: 20160728
